FAERS Safety Report 8078175-5 (Version None)
Quarter: 2012Q1

REPORT INFORMATION
  Report Type: 
  Country: None (occurrence: None)
  Receive Date: 20120127
  Receipt Date: 20120126
  Transmission Date: 20120608
  Serious: Yes (Death, Hospitalization)
  Sender: FDA-Public Use
  Company Number: DE-B.I. PHARMACEUTICALS,INC./RIDGEFIELD-2012-DE-00273DE

PATIENT
  Age: 74 Year
  Sex: Female

DRUGS (17)
  1. PRADAXA [Suspect]
     Route: 048
  2. LYRICA [Concomitant]
     Dosage: 3 ANZ
     Route: 048
  3. KALZIUM [Concomitant]
     Route: 048
  4. TOLTERODINE TARTRATE [Concomitant]
     Dosage: 2 MG
     Route: 048
  5. PANTOPRAZOLE [Concomitant]
     Dosage: 1 ANZ
     Route: 048
  6. METOPROLOL SUCCINATE [Concomitant]
     Dosage: 1 ANZ
     Route: 048
  7. ATACAND HCT [Concomitant]
     Dosage: RT: 16/12.5 MG
     Route: 048
  8. KALINOR RETARD P [Concomitant]
     Dosage: 1 ANZ
     Route: 048
  9. DURAGESIC-100 [Concomitant]
     Dosage: 16.6667 RT
     Route: 062
  10. MAGNESIUM VERLA [Concomitant]
     Route: 048
  11. PRAMIPEXOLE DIHYCHLLORIDE [Concomitant]
     Dosage: 0.36 MG
     Route: 048
  12. FERROUS SULFATE TAB [Concomitant]
     Dosage: 2 ANZ
     Route: 048
  13. VOLTAREN [Concomitant]
     Dosage: 2 ANZ
     Route: 048
  14. ERGOCALCIFEROL [Concomitant]
     Dosage: 500 NR
     Route: 048
  15. AMIODARONE HCL [Concomitant]
     Dosage: 1 ANZ
     Route: 048
  16. REMERGIL SOLTAB [Concomitant]
     Dosage: 15 MG
     Route: 048
  17. MOVIPREP [Concomitant]
     Route: 048

REACTIONS (12)
  - PUPILS UNEQUAL [None]
  - OVERDOSE [None]
  - PERICARDIAL EFFUSION [None]
  - BACK PAIN [None]
  - HEADACHE [None]
  - HAEMORRHAGE [None]
  - DEATH [None]
  - SYNCOPE [None]
  - ASCITES [None]
  - CHEST PAIN [None]
  - COAGULOPATHY [None]
  - CARDIAC ARREST [None]
